FAERS Safety Report 22518501 (Version 1)
Quarter: 2023Q2

REPORT INFORMATION
  Report Type: Spontaneous
  Country: US (occurrence: US)
  Receive Date: 20230605
  Receipt Date: 20230605
  Transmission Date: 20230721
  Serious: No
  Sender: FDA-Public Use
  Company Number: US-BEH-2023159305

PATIENT
  Sex: Female

DRUGS (10)
  1. HIZENTRA [Suspect]
     Active Substance: HUMAN IMMUNOGLOBULIN G
     Indication: Chronic lymphocytic leukaemia
     Dosage: 12 GRAM, QW
     Route: 058
  2. VALACYCLOVIR HYDROCHLORIDE [Concomitant]
     Active Substance: VALACYCLOVIR HYDROCHLORIDE
  3. EFFEXOR [Concomitant]
     Active Substance: VENLAFAXINE HYDROCHLORIDE
  4. CARBAMAZEPINE [Concomitant]
     Active Substance: CARBAMAZEPINE
  5. CARBIDOPA LEVODOPA [Concomitant]
     Active Substance: CARBIDOPA\LEVODOPA
  6. LORAZEPAM [Concomitant]
     Active Substance: LORAZEPAM
  7. NORCO [Concomitant]
     Active Substance: ACETAMINOPHEN\HYDROCODONE BITARTRATE
  8. PREDNISONE [Concomitant]
     Active Substance: PREDNISONE
  9. SPIRONOLACTONE [Concomitant]
     Active Substance: SPIRONOLACTONE
  10. TRAZODONE HCL [Concomitant]
     Active Substance: TRAZODONE HYDROCHLORIDE

REACTIONS (4)
  - Tooth extraction [Not Recovered/Not Resolved]
  - Malaise [Not Recovered/Not Resolved]
  - No adverse event [Not Recovered/Not Resolved]
  - Product dose omission issue [Not Recovered/Not Resolved]
